FAERS Safety Report 18793508 (Version 2)
Quarter: 2021Q4

REPORT INFORMATION
  Report Type: Spontaneous
  Country: GB (occurrence: GB)
  Receive Date: 20210127
  Receipt Date: 20211018
  Transmission Date: 20220304
  Serious: Yes (Other)
  Sender: FDA-Public Use
  Company Number: None

PATIENT
  Age: 66 Year
  Sex: Female
  Weight: 65.31 kg

DRUGS (1)
  1. SERTRALINE [Suspect]
     Active Substance: SERTRALINE HYDROCHLORIDE
     Indication: Depressed mood
     Dosage: 50MG
     Route: 048
     Dates: start: 20201215

REACTIONS (4)
  - Sleep disorder [Unknown]
  - Hyperhidrosis [Unknown]
  - Body temperature increased [Unknown]
  - Stress [Unknown]
